FAERS Safety Report 8503537-9 (Version None)
Quarter: 2012Q3

REPORT INFORMATION
  Report Type: 
  Country: None (occurrence: None)
  Receive Date: 20120711
  Receipt Date: 20120709
  Transmission Date: 20120928
  Serious: No
  Sender: FDA-Public Use
  Company Number: US-PFIZER INC-2012145130

PATIENT
  Sex: Female
  Weight: 49.887 kg

DRUGS (5)
  1. TRAZODONE [Concomitant]
     Indication: INSOMNIA
     Dosage: 50 MG, DAILY
  2. CYMBALTA [Concomitant]
     Indication: DEPRESSION
     Dosage: 20 MG, 2X/DAY
     Dates: start: 20100601
  3. DICYCLOMINE [Concomitant]
     Indication: IRRITABLE BOWEL SYNDROME
     Dosage: 20 MG, 4X/DAY
  4. LYRICA [Suspect]
     Indication: FIBROMYALGIA
     Dosage: 75 MG, 3X/DAY
     Dates: start: 20100401, end: 20120401
  5. TRAMADOL [Concomitant]
     Indication: PAIN
     Dosage: 50 MG, 4X/DAY
     Dates: start: 20101101

REACTIONS (2)
  - PAIN [None]
  - GASTROOESOPHAGEAL REFLUX DISEASE [None]
